FAERS Safety Report 5894146-9 (Version None)
Quarter: 2008Q3

REPORT INFORMATION
  Report Type: 
  Country: None (occurrence: None)
  Receive Date: 20080923
  Receipt Date: 20080130
  Transmission Date: 20090109
  Serious: No
  Sender: FDA-Public Use
  Company Number: US-ASTRAZENECA-2008UW02195

PATIENT
  Age: 57 Year
  Sex: Female
  Weight: 63.5 kg

DRUGS (8)
  1. SEROQUEL [Suspect]
     Indication: BIPOLAR DISORDER
     Route: 048
     Dates: start: 20080127
  2. SEROQUEL [Suspect]
     Route: 048
  3. PREMARIN [Concomitant]
  4. NEURONTIN [Concomitant]
  5. TEMAZEPAM [Concomitant]
  6. CLONAZEPAM [Concomitant]
  7. TEGRETOL [Concomitant]
  8. HYDROCODONE BITARTRATE [Concomitant]

REACTIONS (4)
  - CONFUSIONAL STATE [None]
  - DISCOMFORT [None]
  - FEELING ABNORMAL [None]
  - IMPULSE-CONTROL DISORDER [None]
